FAERS Safety Report 19858666 (Version 1)
Quarter: 2021Q3

REPORT INFORMATION
  Report Type: Spontaneous
  Country: US (occurrence: US)
  Receive Date: 20210920
  Receipt Date: 20210920
  Transmission Date: 20211014
  Serious: Yes (Other)
  Sender: FDA-Public Use
  Company Number: US-PERRIGO-21US025292

PATIENT
  Age: 54 Year

DRUGS (1)
  1. RANITIDINE HYDROCHLORIDE (852) [Suspect]
     Active Substance: RANITIDINE HYDROCHLORIDE
     Indication: ABDOMINAL DISCOMFORT
     Dosage: DOSE FREQUENCY: PERIODS OF NON?USE (AT LEAST 3 MONTHS WITHOUT USE)
     Route: 048
     Dates: start: 199001, end: 201901

REACTIONS (1)
  - Prostate cancer [Unknown]

NARRATIVE: CASE EVENT DATE: 19950501
